FAERS Safety Report 5149040-8 (Version None)
Quarter: 2006Q4

REPORT INFORMATION
  Report Type: 
  Country: None (occurrence: None)
  Receive Date: 20061108
  Receipt Date: 20061026
  Transmission Date: 20070319
  Serious: Yes (Other)
  Sender: FDA-Public Use
  Company Number: CIP06002521

PATIENT
  Age: 89 Year
  Sex: Female

DRUGS (6)
  1. ACTONEL [Suspect]
     Dosage: 35 MG ONCE WEEKLY, ORAL
     Route: 048
     Dates: start: 20060801, end: 20061019
  2. NAMENDA [Concomitant]
  3. ASPIRIN [Concomitant]
  4. CALCARB WITH VITAMIN D                 (VITAMIN D NOS, CALCIUM CARBONA [Concomitant]
  5. METAMUCIL-2 [Concomitant]
  6. MULTIVIT                  (VITAMINS NOS) [Concomitant]

REACTIONS (5)
  - DIZZINESS [None]
  - FALL [None]
  - HYPERTENSION [None]
  - NAUSEA [None]
  - RENAL FAILURE [None]
